FAERS Safety Report 8362038-1 (Version None)
Quarter: 2012Q2

REPORT INFORMATION
  Report Type: 
  Country: None (occurrence: None)
  Receive Date: 20120515
  Receipt Date: 20120509
  Transmission Date: 20120825
  Serious: Yes (Hospitalization)
  Sender: FDA-Public Use
  Company Number: US-B.I. PHARMACEUTICALS,INC./RIDGEFIELD-2012-BP-10421BP

PATIENT
  Age: 65 Year
  Sex: Female

DRUGS (4)
  1. PREVACID 24 HR [Suspect]
     Indication: GASTROOESOPHAGEAL REFLUX DISEASE
     Dosage: 30 MG
     Route: 048
     Dates: start: 20090101
  2. AGGRENOX [Suspect]
     Indication: CEREBROVASCULAR ACCIDENT
     Dates: start: 20070101
  3. ASPIRIN [Concomitant]
     Dates: start: 20120430
  4. AMLODIPINE BESYLATE [Suspect]

REACTIONS (5)
  - OVERDOSE [None]
  - INCORRECT DRUG ADMINISTRATION DURATION [None]
  - CEREBRAL HAEMORRHAGE [None]
  - HYPOTENSION [None]
  - OFF LABEL USE [None]
